FAERS Safety Report 19733836 (Version 1)
Quarter: 2021Q3

REPORT INFORMATION
  Report Type: Spontaneous
  Country: JP (occurrence: JP)
  Receive Date: 20210823
  Receipt Date: 20210823
  Transmission Date: 20211014
  Serious: Yes (Life-Threatening, Hospitalization, Other)
  Sender: FDA-Public Use
  Company Number: JP-LUPIN PHARMACEUTICALS INC.-2021-15226

PATIENT
  Age: 22 Year
  Sex: Female

DRUGS (5)
  1. HYDROCORTISONE. [Suspect]
     Active Substance: HYDROCORTISONE
     Indication: STILL^S DISEASE
     Dosage: UNK
     Route: 042
  2. PREDNISONE. [Suspect]
     Active Substance: PREDNISONE
     Dosage: PREDONISOLONE?DOSE INCREASED
     Route: 065
  3. CYCLOSPORINE. [Suspect]
     Active Substance: CYCLOSPORINE
     Indication: STILL^S DISEASE
     Dosage: UNK
     Route: 065
  4. PREDNISONE. [Suspect]
     Active Substance: PREDNISONE
     Indication: STILL^S DISEASE
     Dosage: UNK
     Route: 065
  5. PREDNISONE. [Suspect]
     Active Substance: PREDNISONE
     Dosage: UNK?PREDONISOLONE
     Route: 065

REACTIONS (6)
  - Ruptured cerebral aneurysm [Unknown]
  - Intracranial aneurysm [Unknown]
  - Subarachnoid haemorrhage [Unknown]
  - Endocarditis [Recovered/Resolved]
  - Nocardiosis [Recovered/Resolved]
  - Hemiplegia [Not Recovered/Not Resolved]
